FAERS Safety Report 24297007 (Version 2)
Quarter: 2025Q1

REPORT INFORMATION
  Report Type: Spontaneous
  Country: US (occurrence: US)
  Receive Date: 20240909
  Receipt Date: 20250102
  Transmission Date: 20250409
  Serious: Yes (Other)
  Sender: BRISTOL-MYERS SQUIBB COMPANY
  Company Number: US-BRISTOL-MYERS SQUIBB COMPANY-2024-139504

PATIENT
  Age: 47 Year
  Sex: Male

DRUGS (2)
  1. ONUREG [Suspect]
     Active Substance: AZACITIDINE
     Indication: Acute myeloid leukaemia
     Route: 048
  2. ONUREG [Suspect]
     Active Substance: AZACITIDINE
     Dosage: PRESCRIBER IS USING OFF LABEL CYCLE OF 21 DAYS ON 7 DAYS OFF.
     Route: 048

REACTIONS (2)
  - Acute myeloid leukaemia recurrent [Unknown]
  - Off label use [Unknown]
